FAERS Safety Report 17072859 (Version 1)
Quarter: 2019Q4

REPORT INFORMATION
  Report Type: Spontaneous
  Country: US (occurrence: US)
  Receive Date: 20191125
  Receipt Date: 20191125
  Transmission Date: 20200122
  Serious: Yes (Other)
  Sender: FDA-Public Use
  Company Number: US-ALLERGAN-1947475US

PATIENT
  Sex: Female
  Weight: 57.6 kg

DRUGS (1)
  1. ARMOUR THYROID [Suspect]
     Active Substance: THYROID, PORCINE
     Indication: PRODUCT USED FOR UNKNOWN INDICATION

REACTIONS (8)
  - Fatigue [Unknown]
  - Feeling abnormal [Unknown]
  - Myocardial infarction [Unknown]
  - Migraine [Unknown]
  - Thyrotoxic crisis [Unknown]
  - Weight increased [Unknown]
  - Heart rate irregular [Unknown]
  - Blood pressure fluctuation [Unknown]
